FAERS Safety Report 7576162-4 (Version None)
Quarter: 2011Q2

REPORT INFORMATION
  Report Type: 
  Country: None (occurrence: None)
  Receive Date: 20110623
  Receipt Date: 20110623
  Transmission Date: 20111010
  Serious: Yes (Death)
  Sender: FDA-Public Use
  Company Number: None

PATIENT
  Age: 30 Year
  Sex: Male

DRUGS (9)
  1. HYDROXYMORPHONE [Concomitant]
  2. OXYCODONE HCL AND ACETAMINOPHEN [Concomitant]
  3. PROAIR HFA [Concomitant]
  4. REVLIMID [Suspect]
     Indication: NON-HODGKIN'S LYMPHOMA
     Dosage: 25MG QDX21D/28D ORALLY
     Route: 048
     Dates: start: 20090701, end: 20091101
  5. OXYCONTIN [Concomitant]
  6. M-OXY [Concomitant]
  7. ALLOPURINOL [Concomitant]
  8. OXYCONTIN [Concomitant]
  9. PROMETHAZINE [Concomitant]

REACTIONS (2)
  - DISEASE PROGRESSION [None]
  - NON-HODGKIN'S LYMPHOMA [None]
